FAERS Safety Report 5575894-7 (Version None)
Quarter: 2007Q4

REPORT INFORMATION
  Report Type: 
  Country: None (occurrence: None)
  Receive Date: 20071228
  Receipt Date: 20071220
  Transmission Date: 20080405
  Serious: No
  Sender: FDA-Public Use
  Company Number: JP-BRISTOL-MYERS SQUIBB COMPANY-14008767

PATIENT
  Age: 60 Year
  Sex: Female

DRUGS (3)
  1. TAXOL [Suspect]
     Indication: OVARIAN CANCER
     Route: 041
  2. PACLITAXEL [Suspect]
     Route: 041
     Dates: start: 20070801, end: 20071101
  3. CARBOMERCK [Suspect]
     Route: 041
     Dates: start: 20070801, end: 20071101

REACTIONS (1)
  - SCLERODERMA [None]
